FAERS Safety Report 8780335 (Version 1)
Quarter: 2012Q4

REPORT INFORMATION
  Report Type: Spontaneous
  Country: US (occurrence: None)
  Receive Date: 20120905
  Receipt Date: 20120905
  Transmission Date: 20130627
  Serious: Yes (Other)
  Sender: FDA-Public Use
  Company Number: None

PATIENT
  Sex: Female
  Weight: 56.7 kg

DRUGS (4)
  1. CITALOPRAM [Suspect]
     Indication: MULTIPLE MYELOMA
     Route: 048
     Dates: start: 2004
  2. CITALOPRAM [Suspect]
     Indication: CANCER
     Route: 048
     Dates: start: 2004
  3. PAROXETINE [Suspect]
     Indication: MULTIPLE MYELOMA
     Route: 048
     Dates: start: 2004
  4. PAROXETINE [Suspect]
     Indication: CANCER
     Route: 048
     Dates: start: 2004

REACTIONS (7)
  - Somnolence [None]
  - Disturbance in attention [None]
  - Disturbance in attention [None]
  - Fatigue [None]
  - Product substitution issue [None]
  - Recurrent cancer [None]
  - Drug ineffective [None]
